FAERS Safety Report 8298753-8 (Version None)
Quarter: 2012Q2

REPORT INFORMATION
  Report Type: 
  Country: None (occurrence: None)
  Receive Date: 20120417
  Receipt Date: 20120417
  Transmission Date: 20120825
  Serious: No
  Sender: FDA-Public Use
  Company Number: None

PATIENT
  Sex: Female
  Weight: 53.5244 kg

DRUGS (1)
  1. PROLIA [Suspect]
     Indication: OSTEOPOROSIS
     Dosage: INJECTION X 2

REACTIONS (4)
  - INFLAMMATION [None]
  - EAR DISORDER [None]
  - IMMUNE SYSTEM DISORDER [None]
  - EYELID OEDEMA [None]
